FAERS Safety Report 5112781-2 (Version None)
Quarter: 2006Q3

REPORT INFORMATION
  Report Type: 
  Country: None (occurrence: None)
  Receive Date: 20060922
  Receipt Date: 20060317
  Transmission Date: 20061208
  Serious: Yes (Other)
  Sender: FDA-Public Use
  Company Number: US-AVENTIS-200612927US

PATIENT
  Sex: Female

DRUGS (18)
  1. LANTUS [Suspect]
     Indication: DIABETES MELLITUS NON-INSULIN-DEPENDENT
     Dates: start: 20010101
  2. OPTICLIK (INSULIN INJECTION PEN) [Suspect]
     Indication: DIABETES MELLITUS NON-INSULIN-DEPENDENT
  3. ZETIA                                   /USA/ [Concomitant]
     Dosage: DOSE: UNKNOWN
  4. NOVOLOG [Concomitant]
     Dosage: DOSE: UNKNOWN
  5. PHENTERMINE [Concomitant]
     Dosage: DOSE: UNKNOWN
  6. METFORMIN [Concomitant]
     Dosage: DOSE: UNKNOWN
  7. BENICAR                                 /USA/ [Concomitant]
     Dosage: DOSE: UNKNOWN
  8. LUMIGAN [Concomitant]
     Dosage: DOSE: UNKNOWN
  9. ALPHAGAN [Concomitant]
     Dosage: DOSE: UNKNOWN
  10. MAGNESIUM [Concomitant]
     Dosage: DOSE: UNKNOWN
  11. ASPIRIN [Concomitant]
     Dosage: DOSE: UNKNOWN
  12. VITAMIN E [Concomitant]
     Dosage: DOSE: UNKNOWN
  13. ASCORBIC ACID [Concomitant]
     Dosage: DOSE: UNKNOWN
  14. GLUCOSAMINE [Concomitant]
     Dosage: DOSE: UNKNOWN
  15. CENTRUM [Concomitant]
     Dosage: DOSE: UNKNOWN
  16. FISH OIL [Concomitant]
     Dosage: DOSE: UNKNOWN
  17. IMIPRAMINE [Concomitant]
     Dosage: DOSE: UNK
  18. SERUMLIPIDREDUCING AGENTS [Concomitant]
     Dosage: DOSE: UNK

REACTIONS (9)
  - BLOOD GLUCOSE INCREASED [None]
  - CARPAL TUNNEL DECOMPRESSION [None]
  - DIABETIC RETINOPATHY [None]
  - GLYCOSYLATED HAEMOGLOBIN INCREASED [None]
  - INJECTION SITE BRUISING [None]
  - INJECTION SITE HAEMORRHAGE [None]
  - INJECTION SITE PAIN [None]
  - KNEE ARTHROPLASTY [None]
  - PAIN IN EXTREMITY [None]
